FAERS Safety Report 7358177-4 (Version None)
Quarter: 2011Q1

REPORT INFORMATION
  Report Type: 
  Country: None (occurrence: None)
  Receive Date: 20110317
  Receipt Date: 20110308
  Transmission Date: 20110831
  Serious: Yes (Other)
  Sender: FDA-Public Use
  Company Number: US-ROCHE-428833

PATIENT
  Sex: Male
  Weight: 66.7 kg

DRUGS (2)
  1. IBUPROFEN [Concomitant]
  2. ACCUTANE [Suspect]
     Route: 065
     Dates: start: 19931001, end: 19940201

REACTIONS (12)
  - SUICIDAL IDEATION [None]
  - DEPRESSED MOOD [None]
  - INFLAMMATORY BOWEL DISEASE [None]
  - COLITIS ULCERATIVE [None]
  - GASTRITIS [None]
  - PROCTITIS [None]
  - IRRITABLE BOWEL SYNDROME [None]
  - EMOTIONAL DISTRESS [None]
  - HAEMORRHOIDS [None]
  - GASTROOESOPHAGEAL REFLUX DISEASE [None]
  - HIATUS HERNIA [None]
  - JOINT INJURY [None]
